FAERS Safety Report 19719611 (Version 2)
Quarter: 2021Q3

REPORT INFORMATION
  Report Type: Spontaneous
  Country: US (occurrence: US)
  Receive Date: 20210818
  Receipt Date: 20210826
  Transmission Date: 20211014
  Serious: No
  Sender: FDA-Public Use
  Company Number: US-PFIZER INC-202100923956

PATIENT
  Age: 73 Year
  Sex: Female
  Weight: 79.38 kg

DRUGS (1)
  1. PREMARIN [Suspect]
     Active Substance: ESTROGENS, CONJUGATED
     Indication: MENOPAUSE
     Dosage: 0.45MG,1.5MG WITH WATER ONCE A DAY

REACTIONS (4)
  - Headache [Unknown]
  - Intentional product misuse [Not Recovered/Not Resolved]
  - Tension headache [Recovering/Resolving]
  - Hot flush [Recovering/Resolving]
